FAERS Safety Report 6877174-6 (Version None)
Quarter: 2010Q3

REPORT INFORMATION
  Report Type: 
  Country: None (occurrence: None)
  Receive Date: 20100727
  Receipt Date: 20100727
  Transmission Date: 20110219
  Serious: Yes (Hospitalization)
  Sender: FDA-Public Use
  Company Number: None

PATIENT
  Age: 59 Year
  Sex: Female
  Weight: 56.246 kg

DRUGS (1)
  1. TRAMADOL HCL [Suspect]
     Indication: ARTHRALGIA
     Dosage: 1 TO 2 TABLETS EVERY 4-6 HOURS PO
     Route: 048
     Dates: start: 20090910, end: 20100720

REACTIONS (6)
  - ABDOMINAL DISCOMFORT [None]
  - ANXIETY [None]
  - INFLUENZA [None]
  - RESTLESS LEGS SYNDROME [None]
  - UNEVALUABLE EVENT [None]
  - WITHDRAWAL SYNDROME [None]
